FAERS Safety Report 7153390-3 (Version None)
Quarter: 2010Q4

REPORT INFORMATION
  Report Type: 
  Country: None (occurrence: None)
  Receive Date: 20101213
  Receipt Date: 20101203
  Transmission Date: 20110411
  Serious: Yes (Other)
  Sender: FDA-Public Use
  Company Number: PHHY2010CA34300

PATIENT
  Sex: Male

DRUGS (3)
  1. ALISKIREN ALI+ [Suspect]
     Indication: HYPERTENSION
     Dosage: 150 MG
     Route: 048
     Dates: start: 20100330, end: 20100510
  2. WELLBUTRIN [Concomitant]
     Dosage: UNK
     Dates: start: 20100330, end: 20100423
  3. LESCOL [Concomitant]
     Dosage: UNK
     Dates: start: 20090218

REACTIONS (4)
  - CHEST DISCOMFORT [None]
  - COUGH [None]
  - DYSPNOEA [None]
  - THROAT IRRITATION [None]
